FAERS Safety Report 9007156 (Version 1)
Quarter: 2013Q1

REPORT INFORMATION
  Report Type: Spontaneous
  Country: US (occurrence: US)
  Receive Date: 20130110
  Receipt Date: 20130110
  Transmission Date: 20140127
  Serious: No
  Sender: FDA-Public Use
  Company Number: US-PFIZER INC-2013005284

PATIENT
  Age: 74 Year
  Sex: Female
  Weight: 54.42 kg

DRUGS (1)
  1. CELEBREX [Suspect]
     Indication: PAIN
     Dosage: 200 MG, DAILY
     Dates: start: 2011

REACTIONS (1)
  - Influenza [Recovering/Resolving]
